FAERS Safety Report 10268198 (Version 1)
Quarter: 2014Q2

REPORT INFORMATION
  Report Type: Spontaneous
  Country: ES (occurrence: ES)
  Receive Date: 20140630
  Receipt Date: 20140630
  Transmission Date: 20141212
  Serious: Yes (Other)
  Sender: FDA-Public Use
  Company Number: ES-PFIZER INC-2014173742

PATIENT
  Sex: 0

DRUGS (1)
  1. AXITINIB [Suspect]
     Dosage: UNK

REACTIONS (2)
  - Hepatic encephalopathy [Unknown]
  - Hyperammonaemia [Unknown]
